FAERS Safety Report 4531689-4 (Version None)
Quarter: 2004Q4

REPORT INFORMATION
  Report Type: 
  Country: None (occurrence: None)
  Receive Date: 20041216
  Receipt Date: 20041202
  Transmission Date: 20050328
  Serious: Yes (Hospitalization)
  Sender: FDA-Public Use
  Company Number: 430090K04USA

PATIENT
  Age: 56 Year
  Sex: Female

DRUGS (2)
  1. NOVANTRONE [Suspect]
     Indication: MULTIPLE SCLEROSIS
     Dates: start: 20040601, end: 20040901
  2. REBIF [Concomitant]

REACTIONS (7)
  - ABDOMINAL PAIN [None]
  - CHEST PAIN [None]
  - CHILLS [None]
  - FEBRILE NEUTROPENIA [None]
  - HEADACHE [None]
  - NAUSEA [None]
  - RED BLOOD CELL COUNT DECREASED [None]
